FAERS Safety Report 4991380-7 (Version None)
Quarter: 2006Q2

REPORT INFORMATION
  Report Type: 
  Country: None (occurrence: None)
  Receive Date: 20060428
  Receipt Date: 20060410
  Transmission Date: 20061013
  Serious: Yes (Hospitalization)
  Sender: FDA-Public Use
  Company Number: US200604001604

PATIENT
  Age: 64 Year
  Sex: Male

DRUGS (14)
  1. HUMULIN L [Suspect]
     Indication: DIABETES MELLITUS
     Dosage: SEE IMAGE
     Dates: start: 19910101
  2. HUMULIN R [Suspect]
     Indication: DIABETES MELLITUS
     Dosage: SEE IMAGE
     Dates: start: 20030101, end: 20040101
  3. HUMULIN R [Suspect]
     Indication: DIABETES MELLITUS
     Dosage: SEE IMAGE
     Dates: start: 20051001
  4. METFORMIN [Concomitant]
  5. DEMADEX [Concomitant]
  6. TOPROL-XL [Concomitant]
  7. HYZAAR [Concomitant]
  8. METOLAZONE [Concomitant]
  9. LIPITOR [Concomitant]
  10. ZETIA [Concomitant]
  11. TRICOR [Concomitant]
  12. VERELAN (VERAPAMIL HYDROCHLORIDE) [Concomitant]
  13. ACTOS [Concomitant]
  14. WELCHOL [Concomitant]

REACTIONS (20)
  - ABASIA [None]
  - ACNE [None]
  - ARTERIAL OCCLUSIVE DISEASE [None]
  - BLOOD GLUCOSE INCREASED [None]
  - CARDIAC DISORDER [None]
  - CONSTIPATION [None]
  - DIABETES MELLITUS [None]
  - DISEASE PROGRESSION [None]
  - FEELING ABNORMAL [None]
  - FURUNCLE [None]
  - HUNGER [None]
  - MALAISE [None]
  - MUSCLE DISORDER [None]
  - NEUROPATHY [None]
  - NON-CARDIAC CHEST PAIN [None]
  - OEDEMA PERIPHERAL [None]
  - OVERWEIGHT [None]
  - PAIN [None]
  - PAIN IN EXTREMITY [None]
  - WEIGHT INCREASED [None]
